FAERS Safety Report 21414285 (Version 1)
Quarter: 2022Q4

REPORT INFORMATION
  Report Type: Spontaneous
  Country: US (occurrence: US)
  Receive Date: 20221006
  Receipt Date: 20221006
  Transmission Date: 20230113
  Serious: No
  Sender: FDA-Public Use
  Company Number: US-ABBVIE-4139650

PATIENT
  Sex: Male
  Weight: 81.646 kg

DRUGS (3)
  1. DUOPA [Suspect]
     Active Substance: CARBIDOPA\LEVODOPA
     Indication: Product used for unknown indication
     Route: 050
     Dates: start: 20200217
  2. DUOPA [Suspect]
     Active Substance: CARBIDOPA\LEVODOPA
  3. Moderna [Concomitant]
     Indication: COVID-19 immunisation
     Dosage: MODERNA
     Route: 030

REACTIONS (4)
  - COVID-19 [Unknown]
  - Nasopharyngitis [Recovering/Resolving]
  - Dyskinesia [Not Recovered/Not Resolved]
  - Fine motor skill dysfunction [Not Recovered/Not Resolved]

NARRATIVE: CASE EVENT DATE: 20220101
